FAERS Safety Report 9638841 (Version 1)
Quarter: 2013Q4

REPORT INFORMATION
  Report Type: Spontaneous
  Country: US (occurrence: US)
  Receive Date: 20131022
  Receipt Date: 20131022
  Transmission Date: 20140711
  Serious: No
  Sender: FDA-Public Use
  Company Number: US-BRISTOL-MYERS SQUIBB COMPANY-19153030

PATIENT
  Age: 87 Year
  Sex: Female
  Weight: 80.72 kg

DRUGS (11)
  1. ELIQUIS [Suspect]
  2. CARVEDILOL [Concomitant]
  3. ALLOPURINOL [Concomitant]
     Dosage: EVERY DAY BEFORE NOON?QAM?(1/2 TABLET)EVERY DAY AFTER NOON OR EVERY EVENING
  4. VITAMIN C [Concomitant]
  5. CALCIUM + VITAMIN D [Concomitant]
  6. GLUCOSAMINE [Concomitant]
     Dosage: GLUCOSAMINE CHONDROITIN DAILY
  7. DIGOXIN [Concomitant]
  8. IRON [Concomitant]
     Dosage: PILL
  9. FUROSEMIDE [Concomitant]
  10. LEVOTHYROXINE [Concomitant]
     Dosage: QAM
  11. PROTONIX [Concomitant]
     Dosage: CAPS QAM (BEFORE BREAKFAST)

REACTIONS (1)
  - Drug administration error [Unknown]
